FAERS Safety Report 4861611-2 (Version None)
Quarter: 2005Q4

REPORT INFORMATION
  Report Type: 
  Country: None (occurrence: None)
  Receive Date: 20051129
  Receipt Date: 20051004
  Transmission Date: 20060501
  Serious: Yes (Other)
  Sender: FDA-Public Use
  Company Number: WAES 0510USA02954

PATIENT
  Sex: Female

DRUGS (3)
  1. VYTORIN [Suspect]
     Dosage: 10-40 MG/DAILY/PO
     Route: 048
  2. LOPID [Concomitant]
  3. TRICOR [Concomitant]

REACTIONS (1)
  - RHABDOMYOLYSIS [None]
